FAERS Safety Report 12237534 (Version 1)
Quarter: 2016Q2

REPORT INFORMATION
  Report Type: Spontaneous
  Country: US (occurrence: None)
  Receive Date: 20160404
  Receipt Date: 20160404
  Transmission Date: 20160815
  Serious: No
  Sender: FDA-Public Use
  Company Number: None

PATIENT
  Age: 59 Year
  Sex: Male
  Weight: 83.92 kg

DRUGS (2)
  1. SYNTHROID [Concomitant]
     Active Substance: LEVOTHYROXINE SODIUM
  2. ROBAFEN [Suspect]
     Active Substance: DEXTROMETHORPHAN HYDROBROMIDE\GUAIFENESIN
     Indication: COUGH
     Dosage: 4 OUNCE(S) AS NEEDED TAKEN BY MOUTH
     Route: 048

REACTIONS (3)
  - Headache [None]
  - Paraesthesia [None]
  - Insomnia [None]

NARRATIVE: CASE EVENT DATE: 20160402
